FAERS Safety Report 8239997-0 (Version None)
Quarter: 2012Q1

REPORT INFORMATION
  Report Type: 
  Country: None (occurrence: None)
  Receive Date: 20120328
  Receipt Date: 20120316
  Transmission Date: 20120608
  Serious: Yes (Hospitalization, Other)
  Sender: FDA-Public Use
  Company Number: US-SANOFI-AVENTIS-2012SA018695

PATIENT
  Age: 103 Year
  Sex: Male

DRUGS (1)
  1. PLAVIX [Suspect]

REACTIONS (2)
  - HYPOPHAGIA [None]
  - DEVICE OCCLUSION [None]
